FAERS Safety Report 15159504 (Version 1)
Quarter: 2018Q3

REPORT INFORMATION
  Report Type: Spontaneous
  Country: JP (occurrence: JP)
  Receive Date: 20180718
  Receipt Date: 20180718
  Transmission Date: 20181010
  Serious: Yes (Other)
  Sender: FDA-Public Use
  Company Number: JP-009507513-1807JPN006279

PATIENT
  Age: 70 Year
  Sex: Female

DRUGS (10)
  1. MAGNESIUM OXIDE. [Concomitant]
     Active Substance: MAGNESIUM OXIDE
  2. DEXAMETHASONE. [Concomitant]
     Active Substance: DEXAMETHASONE
  3. LEUCOVORIN. [Concomitant]
     Active Substance: LEUCOVORIN
  4. EMEND [Suspect]
     Active Substance: APREPITANT
     Indication: PROPHYLAXIS OF NAUSEA AND VOMITING
     Dosage: 125 MG, ONCE A DAY; DAY 1
     Route: 048
  5. EMEND [Suspect]
     Active Substance: APREPITANT
     Dosage: 80 MG, ONCE A DAY, DAY 2 TO DAY 3
     Route: 048
  6. UFT [Concomitant]
     Active Substance: TEGAFUR\URACIL
  7. BEVACIZUMAB. [Concomitant]
     Active Substance: BEVACIZUMAB
  8. DOXYCYCLINE. [Concomitant]
     Active Substance: DOXYCYCLINE
  9. PANITUMUMAB [Concomitant]
     Active Substance: PANITUMUMAB
  10. ROSUVASTATIN. [Concomitant]
     Active Substance: ROSUVASTATIN

REACTIONS (9)
  - Hydronephrosis [Unknown]
  - Hypomagnesaemia [Unknown]
  - Diarrhoea [Unknown]
  - Nausea [Unknown]
  - Weight increased [Unknown]
  - Bone marrow failure [Unknown]
  - Metastases to peritoneum [Unknown]
  - Dermatitis acneiform [Unknown]
  - Paronychia [Unknown]
